FAERS Safety Report 18848549 (Version 2)
Quarter: 2021Q2

REPORT INFORMATION
  Report Type: Spontaneous
  Country: US (occurrence: US)
  Receive Date: 20210204
  Receipt Date: 20210521
  Transmission Date: 20210717
  Serious: Yes (Other)
  Sender: FDA-Public Use
  Company Number: US-GLAXOSMITHKLINE-US2021GSK028827

PATIENT
  Sex: Male

DRUGS (5)
  1. ZANTAC [Suspect]
     Active Substance: RANITIDINE HYDROCHLORIDE
     Indication: HICCUPS
     Dosage: UNK UNK, QD
     Route: 065
     Dates: start: 201008, end: 201709
  2. RANITIDINE. [Suspect]
     Active Substance: RANITIDINE
     Indication: HICCUPS
     Dosage: UNK, QD
     Route: 065
     Dates: start: 201008, end: 201709
  3. RANITIDINE. [Suspect]
     Active Substance: RANITIDINE
     Indication: HICCUPS
     Dosage: UNK UNK, QD
     Route: 065
     Dates: start: 201008, end: 201709
  4. RANITIDINE. [Suspect]
     Active Substance: RANITIDINE
     Indication: HICCUPS
     Dosage: UNK, QD
     Route: 065
     Dates: start: 201008, end: 201709
  5. RANITIDINE HYDROCHLORIDE. [Suspect]
     Active Substance: RANITIDINE HYDROCHLORIDE
     Indication: PRODUCT USED FOR UNKNOWN INDICATION
     Dosage: 100 MG, QD
     Route: 065
     Dates: start: 201008, end: 201709

REACTIONS (1)
  - Prostate cancer [Unknown]
